FAERS Safety Report 14958573 (Version 2)
Quarter: 2018Q3

REPORT INFORMATION
  Report Type: Report from Study
  Country: BR (occurrence: BR)
  Receive Date: 20180531
  Receipt Date: 20180829
  Transmission Date: 20181010
  Serious: Yes (Death, Hospitalization, Other)
  Sender: FDA-Public Use
  Company Number: BR-BAYER-2018-025429

PATIENT
  Age: 47 Year
  Sex: Male

DRUGS (17)
  1. STIVARGA [Suspect]
     Active Substance: REGORAFENIB
     Indication: COLON CANCER
     Dosage: 160 MG, QD
     Dates: start: 20180323, end: 20180514
  2. LACTULONA [Concomitant]
  3. DRAMAMINE [Concomitant]
     Active Substance: DIMENHYDRINATE
  4. LUFTAL [Concomitant]
     Active Substance: DIMETHICONE
  5. STIVARGA [Suspect]
     Active Substance: REGORAFENIB
     Indication: COLON CANCER
     Dosage: 80 MG, QD
     Dates: start: 20180314, end: 20180322
  6. STIVARGA [Suspect]
     Active Substance: REGORAFENIB
     Indication: COLON CANCER
     Dosage: 160 MG, QD
     Dates: start: 20180219, end: 20180228
  7. STIVARGA [Suspect]
     Active Substance: REGORAFENIB
     Indication: COLON CANCER
     Dosage: UNK
     Route: 048
     Dates: start: 20180301, end: 201803
  8. DIMORF [Concomitant]
     Active Substance: MORPHINE SULFATE
  9. OMEGA?3 ACIDS [Concomitant]
     Active Substance: OMEGA-3 FATTY ACIDS
     Dosage: 1 DF, BID
  10. PANTOPRAZOLE SODIUM. [Concomitant]
     Active Substance: PANTOPRAZOLE SODIUM
  11. BUSCOPAN [Concomitant]
     Active Substance: BUTYLSCOPOLAMINE BROMIDE
  12. NAUSEDRON [Concomitant]
     Active Substance: ONDANSETRON HYDROCHLORIDE
  13. AMPLICTIL [Concomitant]
     Active Substance: CHLORPROMAZINE HYDROCHLORIDE
  14. FLUCONAZOL [Concomitant]
     Active Substance: FLUCONAZOLE
  15. BROMOPRIDE [Concomitant]
     Active Substance: BROMOPRIDE
  16. DECADRON [Concomitant]
     Active Substance: DEXAMETHASONE
  17. HALDOL [Concomitant]
     Active Substance: HALOPERIDOL

REACTIONS (13)
  - Vomiting [Fatal]
  - Diarrhoea [None]
  - Product use in unapproved indication [None]
  - Renal disorder [Not Recovered/Not Resolved]
  - Off label use [None]
  - Multiple organ dysfunction syndrome [Fatal]
  - Vomiting [None]
  - Renal failure [Fatal]
  - Diaphragmatic disorder [Fatal]
  - Nausea [None]
  - Urinary retention [Fatal]
  - Urinary tract infection [Fatal]
  - Haemodialysis [None]

NARRATIVE: CASE EVENT DATE: 2018
